FAERS Safety Report 8413324-8 (Version None)
Quarter: 2012Q2

REPORT INFORMATION
  Report Type: 
  Country: None (occurrence: None)
  Receive Date: 20120605
  Receipt Date: 20120522
  Transmission Date: 20120825
  Serious: No
  Sender: FDA-Public Use
  Company Number: US-ASTRAZENECA-2012SE33394

PATIENT
  Age: 58 Year
  Sex: Female

DRUGS (2)
  1. SEROQUEL [Suspect]
     Indication: PANIC ATTACK
     Route: 048
  2. SEROQUEL [Suspect]
     Indication: BIPOLAR DISORDER
     Route: 048

REACTIONS (6)
  - FEELING ABNORMAL [None]
  - THINKING ABNORMAL [None]
  - ACTIVITIES OF DAILY LIVING IMPAIRED [None]
  - DRUG DOSE OMISSION [None]
  - OFF LABEL USE [None]
  - INSOMNIA [None]
